FAERS Safety Report 13466812 (Version 1)
Quarter: 2017Q2

REPORT INFORMATION
  Report Type: Spontaneous
  Country: US (occurrence: US)
  Receive Date: 20170420
  Receipt Date: 20170420
  Transmission Date: 20170830
  Serious: No
  Sender: FDA-Public Use
  Company Number: None

PATIENT
  Age: 88 Year
  Sex: Male
  Weight: 85.96 kg

DRUGS (1)
  1. APIXABAN [Suspect]
     Active Substance: APIXABAN
     Indication: ATRIAL FIBRILLATION
     Route: 048
     Dates: start: 20160606

REACTIONS (9)
  - Platelet count decreased [None]
  - Gastrointestinal haemorrhage [None]
  - Asthenia [None]
  - Dyspnoea [None]
  - Melaena [None]
  - Arteriovenous malformation [None]
  - Haemoglobin decreased [None]
  - Gastric haemorrhage [None]
  - Haematocrit decreased [None]

NARRATIVE: CASE EVENT DATE: 20170222
